FAERS Safety Report 9503800 (Version 1)
Quarter: 2013Q1

REPORT INFORMATION
  Report Type: Spontaneous
  Country: US (occurrence: None)
  Receive Date: 20130107
  Receipt Date: 20130107
  Transmission Date: 20140127
  Serious: No
  Sender: FDA-Public Use
  Company Number: PHEH2012US019865

PATIENT
  Age: 43 Year
  Sex: Female
  Weight: 47.6 kg

DRUGS (1)
  1. GILENYA (FINGOLIMOD) CAPSULE [Suspect]
     Indication: MULTIPLE SCLEROSIS
     Route: 048
     Dates: start: 20120720

REACTIONS (6)
  - Joint stiffness [None]
  - Axillary pain [None]
  - Tenderness [None]
  - Fatigue [None]
  - Arthralgia [None]
  - Asthenia [None]
